FAERS Safety Report 8990428 (Version 1)
Quarter: 2012Q4

REPORT INFORMATION
  Report Type: 
  Country: CA (occurrence: CA)
  Receive Date: 20121228
  Receipt Date: 20121228
  Transmission Date: 20130627
  Serious: Yes (Other)
  Sender: FDA-Public Use
  Company Number: CA-B.I. PHARMACEUTICALS,INC./RIDGEFIELD-2012-CN-02651CN

PATIENT
  Age: 77 Year
  Sex: Male
  Weight: 105 kg

DRUGS (6)
  1. PRADAX [Suspect]
     Dosage: 300 mg
     Route: 065
  2. PRADAX [Suspect]
     Dosage: 220 mg
     Route: 065
  3. METOPROLOL [Concomitant]
  4. QUESTRAN [Concomitant]
  5. SIMVASTATIN [Concomitant]
  6. SPIRIVA [Concomitant]

REACTIONS (2)
  - Haematuria [Recovered/Resolved]
  - International normalised ratio increased [Recovered/Resolved]
